FAERS Safety Report 9519726 (Version 3)
Quarter: 2014Q1

REPORT INFORMATION
  Report Type: Spontaneous
  Country: JP (occurrence: JP)
  Receive Date: 20130912
  Receipt Date: 20140111
  Transmission Date: 20141002
  Serious: Yes (Other)
  Sender: FDA-Public Use
  Company Number: JP-PFIZER INC-2013250974

PATIENT
  Age: 68 Year
  Sex: Female
  Weight: 75 kg

DRUGS (8)
  1. CAMPTO [Suspect]
     Indication: COLON CANCER
     Dosage: 150 MG/M2, 1X/DAY
     Route: 041
     Dates: start: 20120620, end: 201206
  2. CAMPTO [Suspect]
     Dosage: 125 MG/M2, 1X/DAY
     Route: 041
     Dates: start: 2012
  3. FLUOROURACIL [Suspect]
     Indication: COLON CANCER
     Dosage: 2400 MG/M2, CYCLIC, D1-2
  4. TS-1 [Concomitant]
     Dosage: 100 MG/M2, 1X/DAY
     Dates: start: 20120620, end: 20120704
  5. AVASTIN [Concomitant]
     Dosage: 7.5 MG/KG, CYCLIC
     Dates: start: 201206
  6. LEVOFOLINATE [Concomitant]
     Dosage: UNK
  7. DEXART [Concomitant]
     Dosage: UNK
     Dates: start: 20120620
  8. GRANISETRON [Concomitant]
     Dosage: UNK
     Dates: start: 20120620

REACTIONS (4)
  - Diarrhoea [Recovered/Resolved]
  - Hyperammonaemia [Recovering/Resolving]
  - Neutropenia [Recovered/Resolved]
  - Vomiting [Recovered/Resolved]
